FAERS Safety Report 8192123-9 (Version None)
Quarter: 2012Q1

REPORT INFORMATION
  Report Type: 
  Country: None (occurrence: None)
  Receive Date: 20120307
  Receipt Date: 20120302
  Transmission Date: 20120608
  Serious: Yes (Other)
  Sender: FDA-Public Use
  Company Number: DE-PFIZER INC-2012057570

PATIENT
  Sex: Female

DRUGS (1)
  1. VARENICLINE TARTRATE [Suspect]
     Indication: SMOKING CESSATION THERAPY
     Dosage: UNK

REACTIONS (10)
  - DERMATITIS ALLERGIC [None]
  - OEDEMA MOUTH [None]
  - SWELLING FACE [None]
  - ERYTHEMA [None]
  - BURNING SENSATION [None]
  - SLEEP DISORDER [None]
  - NAUSEA [None]
  - ABNORMAL DREAMS [None]
  - SKIN EXFOLIATION [None]
  - DRUG HYPERSENSITIVITY [None]
